FAERS Safety Report 7503829-6 (Version None)
Quarter: 2011Q2

REPORT INFORMATION
  Report Type: 
  Country: None (occurrence: None)
  Receive Date: 20110525
  Receipt Date: 20110517
  Transmission Date: 20111010
  Serious: Yes (Death, Life-Threatening)
  Sender: FDA-Public Use
  Company Number: JP-BRISTOL-MYERS SQUIBB COMPANY-14346381

PATIENT
  Age: 38 Year
  Sex: Male

DRUGS (9)
  1. FAMOTIDINE [Concomitant]
     Route: 042
     Dates: start: 20080731, end: 20080802
  2. SILECE [Concomitant]
     Route: 042
     Dates: start: 20080731, end: 20080802
  3. LACTULOSE [Concomitant]
     Route: 048
     Dates: start: 20080731, end: 20080802
  4. GABEXATE MESILATE [Concomitant]
     Route: 042
     Dates: start: 20080731, end: 20080802
  5. SOLU-MEDROL [Concomitant]
     Route: 042
     Dates: start: 20080731, end: 20080802
  6. SANDIMMUNE [Concomitant]
     Route: 041
     Dates: start: 20080731, end: 20080802
  7. LAXOBERON [Concomitant]
     Route: 048
     Dates: start: 20080731, end: 20080802
  8. BARACLUDE [Suspect]
     Indication: HEPATITIS B
     Dosage: TABS
     Route: 048
     Dates: start: 20080731, end: 20080731
  9. PRIMPERAN TAB [Concomitant]
     Route: 042
     Dates: start: 20080731, end: 20080802

REACTIONS (2)
  - LACTIC ACIDOSIS [None]
  - HEPATIC FAILURE [None]
